FAERS Safety Report 24933869 (Version 1)
Quarter: 2025Q1

REPORT INFORMATION
  Report Type: Report from Study
  Country: CA (occurrence: CA)
  Receive Date: 20250206
  Receipt Date: 20250206
  Transmission Date: 20250409
  Serious: Yes (Other)
  Sender: EXELIXIS
  Company Number: CA-IPSEN Group, Research and Development-2024-04799

PATIENT
  Sex: Male

DRUGS (5)
  1. CABOMETYX [Suspect]
     Active Substance: CABOZANTINIB S-MALATE
     Indication: Renal cell carcinoma
     Dosage: CABOMETYX 60MG DAILY PO
     Route: 048
     Dates: start: 20220421, end: 202304
  2. TYLENOL [Concomitant]
     Active Substance: ACETAMINOPHEN
  3. DEXILANT [Concomitant]
     Active Substance: DEXLANSOPRAZOLE
  4. VITAMIN 1000IU [Concomitant]
  5. VITAMIN 1000IU [Concomitant]

REACTIONS (1)
  - Malignant neoplasm progression [Unknown]
